FAERS Safety Report 7222609-2 (Version None)
Quarter: 2011Q1

REPORT INFORMATION
  Report Type: 
  Country: None (occurrence: None)
  Receive Date: 20110112
  Receipt Date: 20110104
  Transmission Date: 20110831
  Serious: Yes (Life-Threatening)
  Sender: FDA-Public Use
  Company Number: FR-PFIZER INC-FR-WYE-H17585010

PATIENT
  Age: 13 Day
  Sex: Male
  Weight: 2.2 kg

DRUGS (4)
  1. REVATIO [Suspect]
     Indication: PULMONARY ARTERIAL HYPERTENSION
     Dosage: 1 MG/KG, EVERY 6 HOURS
     Route: 048
     Dates: start: 20100903, end: 20100903
  2. FENTANYL-100 [Interacting]
     Dosage: UNK
     Route: 042
     Dates: start: 20100822
  3. PARACETAMOL [Concomitant]
     Indication: PAIN
     Dosage: UNK
     Route: 042
  4. EUPANTOL [Interacting]
     Indication: PROPHYLAXIS AGAINST GASTROINTESTINAL ULCER
     Dosage: UNK
     Route: 042
     Dates: start: 20100822

REACTIONS (5)
  - ANAEMIA [None]
  - EPISTAXIS [None]
  - DRUG INTERACTION [None]
  - RESPIRATORY DISTRESS [None]
  - TRACHEAL HAEMORRHAGE [None]
